FAERS Safety Report 7024641-0 (Version None)
Quarter: 2010Q4

REPORT INFORMATION
  Report Type: 
  Country: None (occurrence: None)
  Receive Date: 20101001
  Receipt Date: 20100921
  Transmission Date: 20110411
  Serious: Yes (Other)
  Sender: FDA-Public Use
  Company Number: FR-JNJFOC-20101000071

PATIENT
  Age: 86 Year
  Sex: Male

DRUGS (6)
  1. TOPALGIC [Suspect]
     Indication: TOOTHACHE
     Route: 065
  2. PROPOFAN [Suspect]
     Indication: TOOTHACHE
     Route: 065
  3. ZOLPIDEM TARTRATE [Suspect]
     Indication: INSOMNIA
     Route: 048
  4. SEROPLEX [Concomitant]
  5. PREVISCAN (FLUINDIONE) [Concomitant]
  6. TAREG [Concomitant]

REACTIONS (5)
  - CONFUSIONAL STATE [None]
  - FALL [None]
  - HALLUCINATION [None]
  - OVERDOSE [None]
  - SOMNAMBULISM [None]
